FAERS Safety Report 12645826 (Version 3)
Quarter: 2017Q1

REPORT INFORMATION
  Report Type: Report from Study
  Country: US (occurrence: US)
  Receive Date: 20160811
  Receipt Date: 20170207
  Transmission Date: 20170428
  Serious: Yes (Hospitalization, Other)
  Sender: FDA-Public Use
  Company Number: US-GILEAD-2016-0227594

PATIENT
  Age: 85 Year
  Sex: Female

DRUGS (4)
  1. AMBRISENTAN [Suspect]
     Active Substance: AMBRISENTAN
     Indication: PRODUCT USED FOR UNKNOWN INDICATION
     Dosage: 10 MG, QD
     Route: 065
  2. ORENITRAM [Suspect]
     Active Substance: TREPROSTINIL
     Dosage: 1 MG, BID
     Route: 065
  3. ORENITRAM [Suspect]
     Active Substance: TREPROSTINIL
     Indication: PRODUCT USED FOR UNKNOWN INDICATION
     Dosage: 0.25 MG, TID
     Route: 065
  4. SILDENAFIL CITRATE. [Concomitant]
     Active Substance: SILDENAFIL CITRATE

REACTIONS (5)
  - Hip fracture [Unknown]
  - Epistaxis [Unknown]
  - Cardiopulmonary failure [Unknown]
  - Nausea [Unknown]
  - Pneumonia [Unknown]
